FAERS Safety Report 15564999 (Version 1)
Quarter: 2018Q4

REPORT INFORMATION
  Report Type: Spontaneous
  Country: CN (occurrence: CN)
  Receive Date: 20181030
  Receipt Date: 20181030
  Transmission Date: 20190205
  Serious: Yes (Other)
  Sender: FDA-Public Use
  Company Number: CN-009507513-1810CHN012958

PATIENT
  Age: 25 Year
  Sex: Male

DRUGS (2)
  1. MOMETASONE FUROATE. [Suspect]
     Active Substance: MOMETASONE FUROATE
     Dosage: UNK, ON AND OFF FOR HALF A YEAR
     Route: 061
  2. MOMETASONE FUROATE. [Suspect]
     Active Substance: MOMETASONE FUROATE
     Indication: DERMATITIS ALLERGIC
     Dosage: UNK
     Route: 061
     Dates: start: 2017, end: 2017

REACTIONS (4)
  - Drug dependence [Unknown]
  - Product use in unapproved indication [Unknown]
  - Dermatitis allergic [Recovered/Resolved]
  - Dermatitis allergic [Not Recovered/Not Resolved]

NARRATIVE: CASE EVENT DATE: 2017
